FAERS Safety Report 5426582-9 (Version None)
Quarter: 2007Q3

REPORT INFORMATION
  Report Type: 
  Country: None (occurrence: None)
  Receive Date: 20070827
  Receipt Date: 20070815
  Transmission Date: 20080115
  Serious: Yes (Hospitalization, Other)
  Sender: FDA-Public Use
  Company Number: US-PFIZER INC-2007043987

PATIENT
  Sex: Female
  Weight: 131.5 kg

DRUGS (1)
  1. CELEBREX [Suspect]
     Indication: ARTHRALGIA
     Dates: start: 20020101, end: 20030101

REACTIONS (8)
  - ARTHROPATHY [None]
  - ASTHMA [None]
  - CARDIOVASCULAR DISORDER [None]
  - EYE DISORDER [None]
  - HYPERTENSION [None]
  - MYOCARDIAL INFARCTION [None]
  - PAIN [None]
  - UTERINE CANCER [None]
